FAERS Safety Report 5217671-2 (Version None)
Quarter: 2006Q4

REPORT INFORMATION
  Report Type: 
  Country: None (occurrence: None)
  Receive Date: 20061130
  Receipt Date: 20060915
  Transmission Date: 20070319
  Serious: Yes (Other)
  Sender: FDA-Public Use
  Company Number: US200601003502

PATIENT
  Age: 50 Year
  Sex: Female
  Weight: 128.3 kg

DRUGS (27)
  1. ZYPREXA [Suspect]
     Indication: BIPOLAR DISORDER
     Dosage: SEE IMAGE
     Dates: start: 19970401, end: 19970501
  2. ZYPREXA [Suspect]
     Indication: BIPOLAR DISORDER
     Dosage: SEE IMAGE
     Dates: start: 19980601, end: 19990301
  3. ZYPREXA [Suspect]
     Indication: BIPOLAR DISORDER
     Dosage: SEE IMAGE
     Dates: start: 20000501, end: 20000801
  4. ZYPREXA [Suspect]
     Indication: BIPOLAR DISORDER
     Dosage: SEE IMAGE
     Dates: start: 20000801, end: 20021101
  5. ZYPREXA [Suspect]
     Indication: BIPOLAR DISORDER
     Dosage: SEE IMAGE
     Dates: start: 20021101, end: 20021201
  6. SEROQUEL [Concomitant]
  7. RISPERDAL [Concomitant]
  8. GEODON [Concomitant]
  9. NAVANE [Concomitant]
  10. LAMICTAL [Concomitant]
  11. MOBAN [Concomitant]
  12. MELLARIL [Concomitant]
  13. PROLIXIN [Concomitant]
  14. DEPAKOTE [Concomitant]
  15. TRAZODONE HCL [Concomitant]
  16. ATIVAN [Concomitant]
  17. CELEXA [Concomitant]
  18. REMERON [Concomitant]
  19. SERZONE [Concomitant]
  20. PAXIL [Concomitant]
  21. EFFEXOR [Concomitant]
  22. LUVOX [Concomitant]
  23. AMOXAPINE [Concomitant]
  24. INDERAL [Concomitant]
  25. PINDOLOL [Concomitant]
  26. PREDNISONE TAB [Concomitant]
  27. LASIX [Concomitant]

REACTIONS (11)
  - BLOOD TRIGLYCERIDES INCREASED [None]
  - CARDIAC FAILURE CONGESTIVE [None]
  - DIABETES MELLITUS [None]
  - DIABETES MELLITUS INSULIN-DEPENDENT [None]
  - GLUCOSE URINE [None]
  - HYPERGLYCAEMIA [None]
  - HYPERLIPIDAEMIA [None]
  - HYPOGLYCAEMIA [None]
  - KETONURIA [None]
  - THIRST [None]
  - WEIGHT INCREASED [None]
